FAERS Safety Report 8925217 (Version 1)
Quarter: 2012Q4

REPORT INFORMATION
  Report Type: 
  Country: CA (occurrence: CA)
  Receive Date: 20121126
  Receipt Date: 20121126
  Transmission Date: 20130627
  Serious: Yes (Hospitalization)
  Sender: FDA-Public Use
  Company Number: CA-009507513-1211CAN009830

PATIENT
  Age: 52 Year
  Sex: Female

DRUGS (2)
  1. PEGETRON [Suspect]
     Indication: HEPATITIS C
     Dosage: UNK
     Dates: start: 20121008, end: 20121104
  2. VICTRELIS [Suspect]

REACTIONS (19)
  - Dizziness [Unknown]
  - Decreased appetite [Unknown]
  - Aphagia [Unknown]
  - Nausea [Unknown]
  - Vomiting [Unknown]
  - Malaise [Unknown]
  - Diarrhoea [Unknown]
  - Syncope [Unknown]
  - Haemoglobin decreased [Unknown]
  - Hospitalisation [Unknown]
  - Infection [Unknown]
  - Abdominal pain upper [Unknown]
  - Weight decreased [Unknown]
  - Depression [Unknown]
  - Dehydration [Unknown]
  - Haemoglobin decreased [Recovering/Resolving]
  - Condition aggravated [Unknown]
  - Syncope [Unknown]
  - Fall [Unknown]
